FAERS Safety Report 15080452 (Version 2)
Quarter: 2018Q3

REPORT INFORMATION
  Report Type: Spontaneous
  Country: AU (occurrence: AU)
  Receive Date: 20180628
  Receipt Date: 20180702
  Transmission Date: 20181010
  Serious: Yes (Hospitalization)
  Sender: FDA-Public Use
  Company Number: AU-STRIDES ARCOLAB LIMITED-2018SP005285

PATIENT

DRUGS (18)
  1. MYCOPHENOLATE MOFETIL. [Suspect]
     Active Substance: MYCOPHENOLATE MOFETIL
     Dosage: 1.5 MG, BID
     Route: 065
     Dates: start: 2014
  2. DAPSONE. [Suspect]
     Active Substance: DAPSONE
     Indication: PYODERMA GANGRENOSUM
     Dosage: UNK
     Route: 065
     Dates: start: 2014
  3. PREDNISOLONE. [Suspect]
     Active Substance: PREDNISOLONE
     Dosage: UNK
     Route: 065
     Dates: start: 2014
  4. CICLOSPORIN [Suspect]
     Active Substance: CYCLOSPORINE
     Indication: PYODERMA GANGRENOSUM
     Dosage: UNK
     Route: 065
     Dates: start: 2014
  5. DAPSONE. [Suspect]
     Active Substance: DAPSONE
     Dosage: 200MG DAILY
     Route: 065
  6. PREDNISOLONE. [Suspect]
     Active Substance: PREDNISOLONE
     Indication: PYODERMA GANGRENOSUM
     Dosage: ON FIVE OCCASIONS, UNKNOWN
     Route: 048
  7. DAPSONE. [Suspect]
     Active Substance: DAPSONE
     Dosage: 100MG DAILY
     Route: 065
  8. MYCOPHENOLATE MOFETIL. [Suspect]
     Active Substance: MYCOPHENOLATE MOFETIL
     Indication: PYODERMA GANGRENOSUM
     Dosage: UNK
     Route: 065
  9. PREDNISOLONE. [Suspect]
     Active Substance: PREDNISOLONE
     Dosage: 10MG DAILY
     Route: 065
  10. AZATHIOPRINE. [Suspect]
     Active Substance: AZATHIOPRINE
     Indication: PYODERMA GANGRENOSUM
     Dosage: UNK
     Route: 065
     Dates: start: 2014
  11. IMMUNOGLOBULIN                     /07494701/ [Suspect]
     Active Substance: IMMUNE GLOBULIN NOS
     Dosage: UNK, ONCE A MONTH
     Route: 065
  12. PREDNISOLONE. [Suspect]
     Active Substance: PREDNISOLONE
     Dosage: 37.5MG DAILY
     Route: 065
  13. METHYLPREDNISOLONE. [Suspect]
     Active Substance: METHYLPREDNISOLONE
     Indication: PYODERMA GANGRENOSUM
     Dosage: ON FIVE OCCASIONS, UNKNOWN
     Route: 042
  14. INFLIXIMAB [Suspect]
     Active Substance: INFLIXIMAB
     Indication: PYODERMA GANGRENOSUM
     Dosage: UNK
     Route: 065
     Dates: start: 2014
  15. IMMUNOGLOBULIN                     /07494701/ [Suspect]
     Active Substance: IMMUNE GLOBULIN NOS
     Indication: PYODERMA GANGRENOSUM
     Dosage: UNK
     Route: 065
     Dates: start: 2014
  16. METHYLPREDNISOLONE. [Suspect]
     Active Substance: METHYLPREDNISOLONE
     Dosage: UNK
     Route: 042
     Dates: start: 2014
  17. PENTOXIFYLLINE. [Suspect]
     Active Substance: PENTOXIFYLLINE
     Indication: PYODERMA GANGRENOSUM
     Dosage: UNK
     Route: 065
     Dates: start: 2014
  18. ADALIMUMAB [Suspect]
     Active Substance: ADALIMUMAB
     Indication: PYODERMA GANGRENOSUM
     Dosage: UNK
     Route: 065
     Dates: start: 2014

REACTIONS (7)
  - Osteonecrosis [Unknown]
  - Cellulitis [Unknown]
  - Klebsiella infection [Unknown]
  - Pseudomonas infection [Unknown]
  - Off label use [Unknown]
  - Sepsis [Unknown]
  - Multiple-drug resistance [Unknown]
